FAERS Safety Report 4568944-8 (Version None)
Quarter: 2005Q1

REPORT INFORMATION
  Report Type: 
  Country: None (occurrence: None)
  Receive Date: 20050203
  Receipt Date: 20040107
  Transmission Date: 20050727
  Serious: Yes (Death, Hospitalization)
  Sender: FDA-Public Use
  Company Number: HU-SOLVAY-00204000241

PATIENT
  Age: 27273 Day
  Sex: Male
  Weight: 77.5 kg

DRUGS (9)
  1. METOPROLOL [Concomitant]
     Indication: ILL-DEFINED DISORDER
     Dosage: DAILY DOSE: UNK.
     Route: 048
     Dates: start: 20031104, end: 20041112
  2. BLINDED THERAPY [PERINDOPRIL VS PLACEBO] [Suspect]
     Indication: CORONARY ARTERY DISEASE
     Dosage: DAILY DOSE: 1 DF.
     Route: 048
     Dates: start: 20031112, end: 20031212
  3. BLINDED THERAPY [PERINDOPRIL VS PLACEBO] [Suspect]
     Dosage: DAILY DOSE: 2 DF.
     Route: 048
     Dates: start: 20031213, end: 20040109
  4. BLINDED THERAPY [PERINDOPRIL VS PLACEBO] [Suspect]
     Dosage: DAILY DOSE: 1 DF.
     Route: 048
     Dates: start: 20040214, end: 20040515
  5. ACETYLSALICYLIC ACID SRT [Concomitant]
     Indication: ILL-DEFINED DISORDER
     Dosage: DAILY DOSE: UNK.
     Route: 048
     Dates: start: 20020101
  6. SIMVASTATIN [Concomitant]
     Indication: ILL-DEFINED DISORDER
     Dosage: DAILY DOSE: UNK.
     Route: 048
  7. ACENOCOUMAROL [Concomitant]
     Indication: ILL-DEFINED DISORDER
     Dosage: DAILY DOSE:  UNKNOWN
     Route: 065
     Dates: start: 20040201, end: 20041112
  8. FAMOTIDINE [Concomitant]
     Indication: ILL-DEFINED DISORDER
     Dosage: DAILY DOSE:  UNKNOWN
     Route: 048
     Dates: start: 20040216, end: 20041112
  9. AMIODARONE HCL [Concomitant]
     Indication: ILL-DEFINED DISORDER
     Dosage: DAILY DOSE:  UNKNOWN
     Route: 065

REACTIONS (9)
  - ACUTE CORONARY SYNDROME [None]
  - ACUTE MYOCARDIAL INFARCTION [None]
  - CARDIOGENIC SHOCK [None]
  - CRUSH SYNDROME [None]
  - DEPRESSION [None]
  - JAUNDICE CHOLESTATIC [None]
  - LEG AMPUTATION [None]
  - POST PROCEDURAL COMPLICATION [None]
  - POST PROCEDURAL HAEMORRHAGE [None]
